FAERS Safety Report 8190892 (Version 2)
Quarter: 2013Q4

REPORT INFORMATION
  Report Type: Spontaneous
  Country: JP (occurrence: JP)
  Receive Date: 20111020
  Receipt Date: 20131206
  Transmission Date: 20140711
  Serious: Yes (Other)
  Sender: FDA-Public Use
  Company Number: JP-ASTELLAS-2011JP007333

PATIENT
  Age: 34 Year
  Sex: Female

DRUGS (11)
  1. PROGRAF [Suspect]
     Indication: PROPHYLAXIS AGAINST GRAFT VERSUS HOST DISEASE
     Dosage: 0.03 MG/KG, CONTINUOUS
     Route: 041
  2. MYCOPHENOLATE MOFETIL [Concomitant]
     Indication: PROPHYLAXIS AGAINST GRAFT VERSUS HOST DISEASE
     Dosage: 30 MG/KG, UNKNOWN/D
     Route: 048
  3. FLUDARABINE [Concomitant]
     Indication: PREMEDICATION
     Dosage: 25 MG/M2, UNKNOWN/D
     Route: 065
  4. MELPHALAN [Concomitant]
     Indication: PREMEDICATION
     Dosage: 40 MG/M2, UNKNOWN/D
     Route: 065
  5. ETOPOSIDE [Concomitant]
     Indication: CHEMOTHERAPY
     Route: 065
  6. DOXORUBICIN [Concomitant]
     Indication: CHEMOTHERAPY
     Route: 065
  7. VINCRISTINE [Concomitant]
     Indication: CHEMOTHERAPY
     Route: 065
  8. PREDNISOLONE [Concomitant]
     Indication: CHEMOTHERAPY
     Route: 065
  9. CYCLOPHOSPHAMIDE [Concomitant]
     Indication: CHEMOTHERAPY
     Route: 065
  10. CYCLOPHOSPHAMIDE [Concomitant]
     Indication: PREMEDICATION
     Dosage: UNK
     Route: 065
  11. METHYLPREDNISOLONE [Concomitant]
     Dosage: 1 MG/KG, UNKNOWN/D
     Route: 065

REACTIONS (2)
  - Drug ineffective [Unknown]
  - Acute graft versus host disease in skin [Unknown]
